FAERS Safety Report 5031498-6 (Version None)
Quarter: 2006Q2

REPORT INFORMATION
  Report Type: 
  Country: None (occurrence: None)
  Receive Date: 20060616
  Receipt Date: 20060606
  Transmission Date: 20061013
  Serious: Yes (Other)
  Sender: FDA-Public Use
  Company Number: 2006072129

PATIENT
  Age: 44 Year
  Sex: Male
  Weight: 58.9676 kg

DRUGS (2)
  1. NEOSPORIN PLUS PAIN RELIEF MAXIMUM STRENGTH(POLYMYXIN B SULFATE, BACIT [Suspect]
     Indication: THERMAL BURN
     Dosage: THIN COAT, TOPICAL
     Route: 061
     Dates: start: 20060604
  2. HYDROGEN PEROXIDE  (HYDROGEN PEROXIDE) [Suspect]
     Indication: THERMAL BURN
     Dosage: TOPICAL
     Route: 061

REACTIONS (2)
  - PAIN [None]
  - SEPSIS [None]
